FAERS Safety Report 5655945-1 (Version None)
Quarter: 2008Q1

REPORT INFORMATION
  Report Type: 
  Country: None (occurrence: None)
  Receive Date: 20080307
  Receipt Date: 20080305
  Transmission Date: 20080703
  Serious: Yes (Hospitalization)
  Sender: FDA-Public Use
  Company Number: GB-BOEHRINGER INGELHEIM GMBH, GERMANY-2008-UK-00791UK

PATIENT
  Age: 52 Year
  Sex: Female
  Weight: 55 kg

DRUGS (2)
  1. VIRAMUNE [Suspect]
     Route: 048
  2. TRUVADA [Suspect]
     Indication: HIV INFECTION
     Dosage: 1DF

REACTIONS (2)
  - DEPRESSION [None]
  - OVERDOSE [None]
